FAERS Safety Report 7252751-1 (Version None)
Quarter: 2011Q1

REPORT INFORMATION
  Report Type: 
  Country: None (occurrence: None)
  Receive Date: 20110129
  Receipt Date: 20100125
  Transmission Date: 20110831
  Serious: Yes (Hospitalization, Other)
  Sender: FDA-Public Use
  Company Number: US-ABBOTT-10P-163-0621839-00

PATIENT
  Sex: Female
  Weight: 61.29 kg

DRUGS (8)
  1. PEPCID [Concomitant]
     Indication: PERFORATED ULCER
  2. SYNTHROID [Concomitant]
     Indication: RADIOTHERAPY TO THYROID
  3. DARVOCET-N 100 [Concomitant]
     Indication: PAIN
  4. METHOTREXATE [Concomitant]
     Indication: RHEUMATOID ARTHRITIS
  5. TUMS [Concomitant]
     Indication: PERFORATED ULCER
     Dosage: ABOUT 3 TO 4 TABS
  6. HUMIRA [Suspect]
  7. LISINOPRIL [Concomitant]
     Indication: HYPERTENSION
  8. HUMIRA [Suspect]
     Indication: RHEUMATOID ARTHRITIS

REACTIONS (1)
  - RHEUMATOID ARTHRITIS [None]
